FAERS Safety Report 4931335-1 (Version None)
Quarter: 2006Q1

REPORT INFORMATION
  Report Type: 
  Country: None (occurrence: None)
  Receive Date: 20060228
  Receipt Date: 20060213
  Transmission Date: 20060701
  Serious: Yes (Hospitalization, Other)
  Sender: FDA-Public Use
  Company Number: 221877

PATIENT
  Age: 52 Year
  Sex: Male

DRUGS (8)
  1. RAPTIVA [Suspect]
     Indication: PSORIASIS
     Dosage: 1.1 ML
     Dates: start: 20050901
  2. LOPRESSOR [Concomitant]
  3. LISINOPRIL [Concomitant]
  4. ASPIRIN [Concomitant]
  5. PLAVIX [Concomitant]
  6. NORVASC [Concomitant]
  7. LIPITOR [Concomitant]
  8. NTG S.L. (NITROGLYCERIN) [Concomitant]

REACTIONS (3)
  - MYOCARDIAL INFARCTION [None]
  - NECK PAIN [None]
  - PAIN IN EXTREMITY [None]
